FAERS Safety Report 8433446-5 (Version None)
Quarter: 2012Q2

REPORT INFORMATION
  Report Type: 
  Country: None (occurrence: None)
  Receive Date: 20120613
  Receipt Date: 20120531
  Transmission Date: 20120825
  Serious: Yes (Other)
  Sender: FDA-Public Use
  Company Number: AU-ASTRAZENECA-2012SE25395

PATIENT
  Age: 441 Month
  Sex: Female

DRUGS (3)
  1. RHINOCORT [Suspect]
     Route: 045
     Dates: end: 20110915
  2. PULMICORT [Suspect]
     Route: 055
     Dates: start: 20110601, end: 20110615
  3. NASONEX [Concomitant]

REACTIONS (17)
  - MATERNAL EXPOSURE DURING PREGNANCY [None]
  - THYROID CYST [None]
  - EYE ALLERGY [None]
  - SINUSITIS [None]
  - NIGHT SWEATS [None]
  - APHONIA [None]
  - EPISTAXIS [None]
  - MUSCULAR WEAKNESS [None]
  - ABDOMINAL PAIN [None]
  - DEPRESSION [None]
  - MENSTRUAL DISORDER [None]
  - NASAL DRYNESS [None]
  - BENIGN HYDATIDIFORM MOLE [None]
  - PERTUSSIS [None]
  - ALOPECIA [None]
  - ABORTION SPONTANEOUS [None]
  - DRY MOUTH [None]
